FAERS Safety Report 9137665 (Version 2)
Quarter: 2013Q1

REPORT INFORMATION
  Report Type: Spontaneous
  Country: AR (occurrence: AR)
  Receive Date: 20130304
  Receipt Date: 20130320
  Transmission Date: 20140127
  Serious: Yes (Other)
  Sender: FDA-Public Use
  Company Number: PHHY2013AR020460

PATIENT
  Age: 69 Year
  Sex: Female

DRUGS (2)
  1. GALVUS MET [Suspect]
     Indication: DIABETES MELLITUS
     Dosage: 2 DF, DAILY
     Route: 048
     Dates: start: 2011
  2. EXFORGE [Suspect]
     Indication: HYPERTENSION
     Dosage: 1 DF(80/5), DAILY
     Route: 048
     Dates: start: 20130226

REACTIONS (3)
  - Blood pressure increased [Recovering/Resolving]
  - Spinal disorder [Unknown]
  - Headache [Unknown]
